FAERS Safety Report 18445996 (Version 1)
Quarter: 2020Q4

REPORT INFORMATION
  Report Type: Spontaneous
  Country: US (occurrence: US)
  Receive Date: 20201030
  Receipt Date: 20201030
  Transmission Date: 20210114
  Serious: Yes (Hospitalization)
  Sender: FDA-Public Use
  Company Number: US-UNICHEM PHARMACEUTICALS (USA) INC-UCM202010-001241

PATIENT
  Age: 51 Year
  Sex: Male

DRUGS (4)
  1. AMLODIPINE [Suspect]
     Active Substance: AMLODIPINE BESYLATE
     Indication: OVERDOSE
     Dosage: 300 MG
  2. HYDROXYZINE [Suspect]
     Active Substance: HYDROXYZINE HYDROCHLORIDE
     Indication: OVERDOSE
     Dosage: 1500 MG
  3. AMLODIPINE [Suspect]
     Active Substance: AMLODIPINE BESYLATE
  4. HYDROXYZINE [Suspect]
     Active Substance: HYDROXYZINE HYDROCHLORIDE

REACTIONS (5)
  - Tachycardia [Recovering/Resolving]
  - Intentional overdose [Recovering/Resolving]
  - Electrocardiogram QT prolonged [Recovering/Resolving]
  - Non-cardiogenic pulmonary oedema [Unknown]
  - Suicide attempt [Unknown]
